FAERS Safety Report 4666947-6 (Version None)
Quarter: 2005Q2

REPORT INFORMATION
  Report Type: 
  Country: None (occurrence: None)
  Receive Date: 20050518
  Receipt Date: 20040803
  Transmission Date: 20051028
  Serious: Yes (Other)
  Sender: FDA-Public Use
  Company Number: 2004207456US

PATIENT
  Age: 20 Year
  Sex: Female

DRUGS (4)
  1. DEPO-PROVERA [Suspect]
     Dosage: SEE IMAGE
     Route: 030
     Dates: start: 20021104, end: 20021104
  2. DEPO-PROVERA [Suspect]
     Dosage: SEE IMAGE
     Route: 030
     Dates: start: 20030421, end: 20030421
  3. DEPO-PROVERA [Suspect]
     Dosage: SEE IMAGE
     Route: 030
     Dates: start: 20031009, end: 20031009
  4. DEPO-PROVERA [Suspect]
     Dosage: 150 MG/12 WEEKS, 2ND INJECTION, INTRAMUSCULAR
     Route: 030
     Dates: start: 20030127, end: 20030127

REACTIONS (1)
  - UNINTENDED PREGNANCY [None]
